FAERS Safety Report 15481319 (Version 1)
Quarter: 2018Q4

REPORT INFORMATION
  Report Type: Spontaneous
  Country: FR (occurrence: FR)
  Receive Date: 20181010
  Receipt Date: 20181010
  Transmission Date: 20190205
  Serious: Yes (Hospitalization)
  Sender: FDA-Public Use
  Company Number: FR-ROCHE-2196645

PATIENT
  Age: 4 Year
  Sex: Male

DRUGS (6)
  1. CREON [Concomitant]
     Active Substance: PANCRELIPASE AMYLASE\PANCRELIPASE LIPASE\PANCRELIPASE PROTEASE
     Route: 048
  2. L THYROXINE [Concomitant]
     Active Substance: LEVOTHYROXINE SODIUM
     Route: 048
  3. NEORAL [Concomitant]
     Active Substance: CYCLOSPORINE
     Dosage: 100 MG/ML
     Route: 048
  4. HYDROCORTISONE ^ROUSSEL^ [Concomitant]
     Active Substance: HYDROCORTISONE
     Route: 048
  5. FLUDROCORTISONE [Concomitant]
     Active Substance: FLUDROCORTISONE
     Route: 048
  6. CELLCEPT [Suspect]
     Active Substance: MYCOPHENOLATE MOFETIL\MYCOPHENOLATE MOFETIL HYDROCHLORIDE
     Indication: LIVER TRANSPLANT
     Dosage: 1 G/5 ML
     Route: 048

REACTIONS (1)
  - Gastrointestinal inflammation [Recovering/Resolving]

NARRATIVE: CASE EVENT DATE: 201806
